FAERS Safety Report 4663015-4 (Version None)
Quarter: 2005Q2

REPORT INFORMATION
  Report Type: 
  Country: None (occurrence: None)
  Receive Date: 20050513
  Receipt Date: 20050504
  Transmission Date: 20051028
  Serious: Yes (Hospitalization)
  Sender: FDA-Public Use
  Company Number: 2005RL000050

PATIENT
  Age: 24 Year
  Sex: Male

DRUGS (1)
  1. PROPRANOLOL HYDROCHLORIDE [Suspect]
     Indication: CARDIAC NEUROSIS
     Dosage: 2.28 GM; X1; PO; PRN
     Route: 048

REACTIONS (7)
  - BRUGADA SYNDROME [None]
  - BUNDLE BRANCH BLOCK RIGHT [None]
  - DRUG TOXICITY [None]
  - ELECTROCARDIOGRAM ST SEGMENT ELEVATION [None]
  - INTENTIONAL MISUSE [None]
  - PALLOR [None]
  - SUICIDE ATTEMPT [None]
